FAERS Safety Report 25594181 (Version 1)
Quarter: 2025Q3

REPORT INFORMATION
  Report Type: Spontaneous
  Country: CN (occurrence: CN)
  Receive Date: 20250723
  Receipt Date: 20250723
  Transmission Date: 20251020
  Serious: Yes (Other)
  Sender: BEIGENE
  Company Number: CN-BEIGENE-BGN-2025-011672

PATIENT
  Age: 63 Year

DRUGS (4)
  1. TISLELIZUMAB [Suspect]
     Active Substance: TISLELIZUMAB
     Indication: Adenosquamous cell lung cancer stage IV
     Dosage: 200 MILLIGRAM, Q3WK, D1
  2. TISLELIZUMAB [Suspect]
     Active Substance: TISLELIZUMAB
     Dosage: 200 MILLIGRAM, Q3WK
  3. PACLITAXEL [Suspect]
     Active Substance: PACLITAXEL
     Indication: Adenosquamous cell lung cancer stage IV
     Dosage: 220 MILLIGRAM, Q3WK, OVER 3 HOURS ON DAY 1
  4. NEDAPLATIN [Suspect]
     Active Substance: NEDAPLATIN
     Indication: Adenosquamous cell lung cancer stage IV
     Dosage: 60 MILLIGRAM, Q3WK, ON DAYS 1 AND 2

REACTIONS (1)
  - Myelosuppression [Recovered/Resolved]
